FAERS Safety Report 9683083 (Version 2)
Quarter: 2013Q4

REPORT INFORMATION
  Report Type: Spontaneous
  Country: US (occurrence: US)
  Receive Date: 20131112
  Receipt Date: 20131112
  Transmission Date: 20140711
  Serious: No
  Sender: FDA-Public Use
  Company Number: US-PFIZER INC-2013320328

PATIENT
  Age: 58 Year
  Sex: Female

DRUGS (4)
  1. FLAGYL [Suspect]
     Dosage: UNK
  2. MORPHINE HCL [Suspect]
     Dosage: UNK
  3. TOBRAMYCIN [Suspect]
     Dosage: UNK
  4. DEMEROL [Suspect]

REACTIONS (1)
  - Drug hypersensitivity [Unknown]
